FAERS Safety Report 8860242 (Version 2)
Quarter: 2012Q4

REPORT INFORMATION
  Report Type: 
  Country: SG (occurrence: SG)
  Receive Date: 20121025
  Receipt Date: 20121107
  Transmission Date: 20130627
  Serious: Yes (Other)
  Sender: FDA-Public Use
  Company Number: PHHY2012SG095453

PATIENT
  Sex: Female
  Weight: 62.6 kg

DRUGS (4)
  1. FEMARA [Suspect]
     Indication: BREAST CANCER
     Dosage: 2.5 mg/day
     Route: 048
     Dates: start: 20070124, end: 201112
  2. ACTONEL [Concomitant]
     Dosage: 35 mg
     Dates: start: 20071001, end: 200812
  3. BONVIVA [Concomitant]
     Dosage: 150 mg monthly
     Dates: start: 20101027, end: 201103
  4. BONDRONAT [Concomitant]
     Dosage: 150 mg/ monthly
     Dates: start: 20110401, end: 201201

REACTIONS (1)
  - Hypothyroidism [Recovered/Resolved]
